FAERS Safety Report 7065661-X (Version None)
Quarter: 2010Q4

REPORT INFORMATION
  Report Type: 
  Country: None (occurrence: None)
  Receive Date: 20101022
  Receipt Date: 20101022
  Transmission Date: 20110411
  Serious: No
  Sender: FDA-Public Use
  Company Number: None

PATIENT
  Age: 77 Year
  Sex: Female
  Weight: 73 kg

DRUGS (2)
  1. VENOFER [Suspect]
     Indication: IRON DEFICIENCY
     Dosage: 500 MG Q 2 WEEKS IV
     Route: 042
     Dates: start: 20100913
  2. VENOFER [Suspect]
     Indication: IRON DEFICIENCY
     Dosage: 500 MG Q 2 WEEKS IV
     Route: 042
     Dates: start: 20100927

REACTIONS (2)
  - PRURITUS [None]
  - RASH [None]
